FAERS Safety Report 4578491-5 (Version None)
Quarter: 2005Q1

REPORT INFORMATION
  Report Type: 
  Country: None (occurrence: None)
  Receive Date: 20050209
  Receipt Date: 20041217
  Transmission Date: 20050727
  Serious: Yes (Other)
  Sender: FDA-Public Use
  Company Number: 2005019506

PATIENT
  Sex: Female

DRUGS (2)
  1. CELEBREX [Suspect]
     Dosage: (200 MG)
     Dates: start: 19980101, end: 20000101
  2. ROFECOXIB [Suspect]
     Dates: start: 20000101, end: 20021101

REACTIONS (1)
  - MYOCARDIAL INFARCTION [None]
